FAERS Safety Report 10660547 (Version 1)
Quarter: 2014Q4

REPORT INFORMATION
  Report Type: Spontaneous
  Country: US (occurrence: US)
  Receive Date: 20141217
  Receipt Date: 20141217
  Transmission Date: 20150529
  Serious: No
  Sender: FDA-Public Use
  Company Number: US-PURDUE-USA-2014-0118136

PATIENT
  Age: 70 Year
  Sex: Female

DRUGS (3)
  1. DILAUDID [Suspect]
     Active Substance: HYDROMORPHONE HYDROCHLORIDE
     Indication: UPPER LIMB FRACTURE
     Dosage: 3 MG, BID
     Route: 048
  2. DILAUDID [Suspect]
     Active Substance: HYDROMORPHONE HYDROCHLORIDE
     Indication: INTERVERTEBRAL DISC PROTRUSION
     Dosage: 3 MG, TID
     Route: 048
     Dates: start: 2012
  3. HYDROMORPHONE HCL (SIMILAR TO 19-892) [Suspect]
     Active Substance: HYDROMORPHONE HYDROCHLORIDE
     Indication: PRODUCT USED FOR UNKNOWN INDICATION
     Dosage: 2 MG, UNK
     Route: 048

REACTIONS (9)
  - Drug ineffective [Unknown]
  - Tremor [Unknown]
  - Pain [Unknown]
  - Nasal congestion [Unknown]
  - Mental impairment [Unknown]
  - Unevaluable event [Unknown]
  - Back injury [Unknown]
  - Feeling abnormal [Unknown]
  - Fall [Unknown]

NARRATIVE: CASE EVENT DATE: 20141007
